FAERS Safety Report 17353688 (Version 1)
Quarter: 2020Q1

REPORT INFORMATION
  Report Type: Other
  Country: US (occurrence: US)
  Receive Date: 20200131
  Receipt Date: 20200131
  Transmission Date: 20200409
  Serious: Yes (Hospitalization, Other)
  Sender: FDA-Public Use
  Company Number: US-APTAPHARMA INC.-2079645

PATIENT
  Age: 20 Year
  Sex: Male

DRUGS (1)
  1. IBUPROFEN ORAL [Suspect]
     Active Substance: IBUPROFEN
     Indication: PRODUCT USED FOR UNKNOWN INDICATION
     Route: 048

REACTIONS (8)
  - Metabolic acidosis [Unknown]
  - Mental status changes [Unknown]
  - Tonic convulsion [Unknown]
  - Confusional state [Unknown]
  - Aggression [Unknown]
  - Intentional overdose [Unknown]
  - Hypotonia [Unknown]
  - Fall [Unknown]
